FAERS Safety Report 6206213-0 (Version None)
Quarter: 2009Q2

REPORT INFORMATION
  Report Type: 
  Country: None (occurrence: None)
  Receive Date: 20090528
  Receipt Date: 20090330
  Transmission Date: 20091009
  Serious: No
  Sender: FDA-Public Use
  Company Number: US-KINGPHARMUSA00001-K200900360

PATIENT
  Sex: Female
  Weight: 54.422 kg

DRUGS (3)
  1. AVINZA [Suspect]
     Indication: COMPLEX REGIONAL PAIN SYNDROME
     Dosage: 30 MG, QD
     Route: 048
     Dates: start: 20030101, end: 20090303
  2. AVINZA [Suspect]
     Indication: ROTATOR CUFF SYNDROME
  3. DIOVAN [Concomitant]
     Indication: HYPERTENSION
     Dosage: UNK %, QD

REACTIONS (2)
  - CONSTIPATION [None]
  - WITHDRAWAL SYNDROME [None]
